FAERS Safety Report 4655442-6 (Version None)
Quarter: 2005Q2

REPORT INFORMATION
  Report Type: 
  Country: None (occurrence: None)
  Receive Date: 20050505
  Receipt Date: 20050418
  Transmission Date: 20051028
  Serious: Yes (Hospitalization)
  Sender: FDA-Public Use
  Company Number: USA050495911

PATIENT
  Age: 79 Year
  Sex: Female

DRUGS (5)
  1. FORTEO [Suspect]
     Indication: BONE DISORDER
     Dates: start: 20050101
  2. LANOXIN [Concomitant]
  3. MAVIK [Concomitant]
  4. DILANTIN [Concomitant]
  5. OSCAL (CALCIUM CARBONATE) [Concomitant]

REACTIONS (5)
  - ASTHENIA [None]
  - BRONCHITIS [None]
  - CARDIAC DISORDER [None]
  - LUNG DISORDER [None]
  - PHARMACEUTICAL PRODUCT COMPLAINT [None]
